FAERS Safety Report 14007790 (Version 1)
Quarter: 2017Q3

REPORT INFORMATION
  Report Type: Spontaneous
  Country: US (occurrence: US)
  Receive Date: 20170925
  Receipt Date: 20170925
  Transmission Date: 20171128
  Serious: No
  Sender: FDA-Public Use
  Company Number: US-009507513-1709USA008522

PATIENT
  Age: 33 Year
  Sex: Female

DRUGS (9)
  1. MELATONIN [Concomitant]
     Active Substance: MELATONIN
     Dosage: UNK
  2. CALCIUM (UNSPECIFIED) (+) VITAMIN D (UNSPECIFIED) [Concomitant]
     Active Substance: CALCIUM CARBONATE\VITAMIN D
     Dosage: UNK
  3. TRAZODONE HYDROCHLORIDE. [Concomitant]
     Active Substance: TRAZODONE HYDROCHLORIDE
     Dosage: UNK
  4. OXITRIPTAN [Concomitant]
     Active Substance: OXITRIPTAN
     Dosage: UNK
  5. BIOTIN [Concomitant]
     Active Substance: BIOTIN
     Dosage: UNK
  6. BELSOMRA [Suspect]
     Active Substance: SUVOREXANT
     Indication: INSOMNIA
     Dosage: 10 MG TABLET EVERY NIGHT
     Route: 048
     Dates: start: 20170911
  7. VITAMINS (UNSPECIFIED) [Concomitant]
     Active Substance: VITAMINS
     Dosage: UNK
  8. LUNESTA [Concomitant]
     Active Substance: ESZOPICLONE
     Dosage: UNK
  9. IBUPROFEN. [Concomitant]
     Active Substance: IBUPROFEN
     Dosage: UNK

REACTIONS (1)
  - Drug ineffective [Unknown]

NARRATIVE: CASE EVENT DATE: 20170911
